FAERS Safety Report 9752960 (Version 2)
Quarter: 2013Q4

REPORT INFORMATION
  Report Type: Spontaneous
  Country: US (occurrence: US)
  Receive Date: 20131213
  Receipt Date: 20131213
  Transmission Date: 20140711
  Serious: Yes (Life-Threatening, Other)
  Sender: FDA-Public Use
  Company Number: US-JNJFOC-20131104496

PATIENT
  Age: 64 Year
  Sex: Female
  Weight: 103.87 kg

DRUGS (148)
  1. SIMPONI ARIA [Suspect]
     Indication: RHEUMATOID ARTHRITIS
     Route: 042
     Dates: start: 20131008
  2. SIMPONI ARIA [Suspect]
     Indication: RHEUMATOID ARTHRITIS
     Route: 042
     Dates: start: 20131106
  3. TYLENOL [Concomitant]
     Dosage: PM
     Route: 065
     Dates: start: 20130730
  4. TYLENOL [Concomitant]
     Dosage: PM
     Route: 065
     Dates: start: 20131106
  5. TYLENOL [Concomitant]
     Dosage: PM
     Route: 065
     Dates: start: 20131008
  6. TYLENOL [Concomitant]
     Dosage: PM
     Route: 065
     Dates: start: 20130827
  7. TYLENOL [Concomitant]
     Dosage: PM
     Route: 065
     Dates: start: 20131125
  8. TYLENOL [Concomitant]
     Dosage: PM
     Route: 065
     Dates: start: 20130702
  9. TYLENOL [Concomitant]
     Dosage: PM
     Route: 065
     Dates: start: 20130604
  10. TYLENOL [Concomitant]
     Dosage: PM
     Route: 065
     Dates: start: 20130430
  11. TYLENOL [Concomitant]
     Dosage: PM
     Route: 065
     Dates: start: 20130404
  12. VITAMIN D [Concomitant]
     Route: 065
     Dates: start: 20130730
  13. VITAMIN D [Concomitant]
     Route: 065
     Dates: start: 20131106
  14. VITAMIN D [Concomitant]
     Route: 065
     Dates: start: 20131008
  15. VITAMIN D [Concomitant]
     Route: 065
     Dates: start: 20130827
  16. VITAMIN D [Concomitant]
     Route: 065
     Dates: start: 20131125
  17. VITAMIN D [Concomitant]
     Route: 065
     Dates: start: 20130702
  18. VITAMIN D [Concomitant]
     Route: 065
     Dates: start: 20130604
  19. VITAMIN D [Concomitant]
     Route: 065
     Dates: start: 20130430
  20. VITAMIN D [Concomitant]
     Route: 065
     Dates: start: 20130404
  21. ZYRTEC [Concomitant]
     Route: 065
     Dates: start: 20130730
  22. ZYRTEC [Concomitant]
     Route: 065
     Dates: start: 20131106
  23. ZYRTEC [Concomitant]
     Route: 065
     Dates: start: 20131008
  24. ZYRTEC [Concomitant]
     Route: 065
     Dates: start: 20130827
  25. ZYRTEC [Concomitant]
     Route: 065
     Dates: start: 20131125
  26. ZYRTEC [Concomitant]
     Route: 065
     Dates: start: 20130702
  27. ZYRTEC [Concomitant]
     Route: 065
     Dates: start: 20130604
  28. ZYRTEC [Concomitant]
     Route: 065
     Dates: start: 20130430
  29. ZYRTEC [Concomitant]
     Route: 065
     Dates: start: 20130404
  30. FOLIC ACID [Concomitant]
     Route: 065
     Dates: start: 20131106
  31. FOLIC ACID [Concomitant]
     Route: 065
     Dates: start: 20131125
  32. FOLIC ACID [Concomitant]
     Route: 065
     Dates: start: 20131008
  33. METHOTREXATE [Concomitant]
     Indication: RHEUMATOID ARTHRITIS
     Dosage: 0.3 CC
     Route: 065
     Dates: start: 20131106
  34. METHOTREXATE [Concomitant]
     Indication: RHEUMATOID ARTHRITIS
     Dosage: 0.3 CC
     Route: 065
     Dates: start: 20131125
  35. METHOTREXATE [Concomitant]
     Indication: RHEUMATOID ARTHRITIS
     Dosage: 0.3 CC
     Route: 065
     Dates: start: 20131008
  36. ATELVIA [Concomitant]
     Route: 065
     Dates: start: 20130730
  37. ATELVIA [Concomitant]
     Route: 065
     Dates: start: 20131106
  38. ATELVIA [Concomitant]
     Route: 065
     Dates: start: 20131008
  39. ATELVIA [Concomitant]
     Route: 065
     Dates: start: 20130827
  40. ATELVIA [Concomitant]
     Route: 065
     Dates: start: 20131125
  41. ATELVIA [Concomitant]
     Route: 065
     Dates: start: 20130702
  42. ATELVIA [Concomitant]
     Route: 065
     Dates: start: 20130604
  43. ATELVIA [Concomitant]
     Route: 065
     Dates: start: 20130430
  44. ATELVIA [Concomitant]
     Route: 065
     Dates: start: 20130404
  45. AMBIEN [Concomitant]
     Route: 065
     Dates: start: 20130730
  46. AMBIEN [Concomitant]
     Route: 065
     Dates: start: 20131106
  47. AMBIEN [Concomitant]
     Route: 065
     Dates: start: 20131008
  48. AMBIEN [Concomitant]
     Route: 065
     Dates: start: 20130827
  49. AMBIEN [Concomitant]
     Route: 065
     Dates: start: 20131125
  50. AMBIEN [Concomitant]
     Route: 065
     Dates: start: 20130702
  51. AMBIEN [Concomitant]
     Route: 065
     Dates: start: 20130604
  52. AMBIEN [Concomitant]
     Route: 065
     Dates: start: 20130430
  53. AMBIEN [Concomitant]
     Route: 065
     Dates: start: 20130404
  54. LORCET [Concomitant]
     Dosage: PM
     Route: 065
     Dates: start: 20130730
  55. LORCET [Concomitant]
     Dosage: PM
     Route: 065
     Dates: start: 20131106
  56. LORCET [Concomitant]
     Dosage: PM
     Route: 065
     Dates: start: 20131008
  57. LORCET [Concomitant]
     Dosage: PM
     Route: 065
     Dates: start: 20130827
  58. LORCET [Concomitant]
     Dosage: PM
     Route: 065
     Dates: start: 20131125
  59. LORCET [Concomitant]
     Dosage: PM
     Route: 065
     Dates: start: 20130702
  60. LORCET [Concomitant]
     Dosage: PM
     Route: 065
     Dates: start: 20130604
  61. LORCET [Concomitant]
     Dosage: PM
     Route: 065
     Dates: start: 20130430
  62. LORCET [Concomitant]
     Dosage: PM
     Route: 065
     Dates: start: 20130404
  63. NEURONTIN [Concomitant]
     Route: 065
     Dates: start: 20130730
  64. NEURONTIN [Concomitant]
     Route: 065
     Dates: start: 20131106
  65. NEURONTIN [Concomitant]
     Route: 065
     Dates: start: 20131008
  66. NEURONTIN [Concomitant]
     Route: 065
     Dates: start: 20130827
  67. NEURONTIN [Concomitant]
     Route: 065
     Dates: start: 20131125
  68. NEURONTIN [Concomitant]
     Route: 065
     Dates: start: 20130702
  69. NEURONTIN [Concomitant]
     Route: 065
     Dates: start: 20130604
  70. NEURONTIN [Concomitant]
     Route: 065
     Dates: start: 20130430
  71. NEURONTIN [Concomitant]
     Route: 065
     Dates: start: 20130404
  72. SOMA [Concomitant]
     Route: 065
     Dates: start: 20130730
  73. SOMA [Concomitant]
     Route: 065
     Dates: start: 20131106
  74. SOMA [Concomitant]
     Route: 065
     Dates: start: 20131008
  75. SOMA [Concomitant]
     Route: 065
     Dates: start: 20130827
  76. SOMA [Concomitant]
     Route: 065
     Dates: start: 20131125
  77. SOMA [Concomitant]
     Route: 065
     Dates: start: 20130702
  78. SOMA [Concomitant]
     Route: 065
     Dates: start: 20130604
  79. SOMA [Concomitant]
     Route: 065
     Dates: start: 20130430
  80. SOMA [Concomitant]
     Route: 065
     Dates: start: 20130404
  81. CITRACAL [Concomitant]
     Route: 065
     Dates: start: 20130730
  82. CITRACAL [Concomitant]
     Route: 065
     Dates: start: 20131106
  83. CITRACAL [Concomitant]
     Route: 065
     Dates: start: 20131008
  84. CITRACAL [Concomitant]
     Route: 065
     Dates: start: 20130827
  85. CITRACAL [Concomitant]
     Route: 065
     Dates: start: 20131125
  86. CITRACAL [Concomitant]
     Route: 065
     Dates: start: 20130702
  87. CITRACAL [Concomitant]
     Route: 065
     Dates: start: 20130604
  88. CITRACAL [Concomitant]
     Route: 065
     Dates: start: 20130430
  89. CITRACAL [Concomitant]
     Route: 065
     Dates: start: 20130404
  90. PRISTIQ [Concomitant]
     Route: 065
     Dates: start: 20131125
  91. PRISTIQ [Concomitant]
     Route: 065
     Dates: start: 20131106
  92. PRISTIQ [Concomitant]
     Route: 065
     Dates: start: 20131008
  93. PRISTIQ [Concomitant]
     Route: 065
     Dates: start: 20130827
  94. PRISTIQ [Concomitant]
     Route: 065
     Dates: start: 20130730
  95. PRISTIQ [Concomitant]
     Route: 065
     Dates: start: 20130702
  96. PRISTIQ [Concomitant]
     Route: 065
     Dates: start: 20130604
  97. PRISTIQ [Concomitant]
     Route: 065
     Dates: start: 20130430
  98. PRISTIQ [Concomitant]
     Route: 065
     Dates: start: 20130404
  99. FLECAINIDE ACETATE [Concomitant]
     Route: 065
     Dates: start: 20130702
  100. FLECAINIDE ACETATE [Concomitant]
     Route: 065
     Dates: start: 20130404
  101. FLECAINIDE ACETATE [Concomitant]
     Route: 065
     Dates: start: 20130430
  102. FLECAINIDE ACETATE [Concomitant]
     Route: 065
     Dates: start: 20130604
  103. FLECAINIDE ACETATE [Concomitant]
     Route: 065
     Dates: start: 20131125
  104. FLECAINIDE ACETATE [Concomitant]
     Route: 065
     Dates: start: 20130730
  105. FLECAINIDE ACETATE [Concomitant]
     Route: 065
     Dates: start: 20130827
  106. FLECAINIDE ACETATE [Concomitant]
     Route: 065
     Dates: start: 20131008
  107. FLECAINIDE ACETATE [Concomitant]
     Route: 065
     Dates: start: 20131106
  108. MTV [Concomitant]
     Route: 065
     Dates: start: 20130404
  109. MTV [Concomitant]
     Route: 065
     Dates: start: 20130430
  110. MTV [Concomitant]
     Route: 065
     Dates: start: 20130604
  111. MTV [Concomitant]
     Route: 065
     Dates: start: 20130702
  112. MTV [Concomitant]
     Route: 065
     Dates: start: 20130730
  113. MTV [Concomitant]
     Route: 065
     Dates: start: 20130827
  114. MTV [Concomitant]
     Route: 065
     Dates: start: 20131008
  115. MTV [Concomitant]
     Route: 065
     Dates: start: 20131125
  116. MTV [Concomitant]
     Route: 065
     Dates: start: 20131106
  117. IRON SUPPLEMENT [Concomitant]
     Route: 065
     Dates: start: 20130730
  118. IRON SUPPLEMENT [Concomitant]
     Route: 065
     Dates: start: 20130430
  119. IRON SUPPLEMENT [Concomitant]
     Route: 065
     Dates: start: 20130604
  120. IRON SUPPLEMENT [Concomitant]
     Route: 065
     Dates: start: 20130702
  121. IRON SUPPLEMENT [Concomitant]
     Route: 065
     Dates: start: 20130404
  122. IRON SUPPLEMENT [Concomitant]
     Route: 065
     Dates: start: 20130827
  123. IRON SUPPLEMENT [Concomitant]
     Route: 065
     Dates: start: 20131008
  124. IRON SUPPLEMENT [Concomitant]
     Route: 065
     Dates: start: 20131106
  125. IRON SUPPLEMENT [Concomitant]
     Route: 065
     Dates: start: 20131125
  126. EVOXAC [Concomitant]
     Route: 065
     Dates: start: 20130430
  127. EVOXAC [Concomitant]
     Route: 065
     Dates: start: 20130404
  128. EVOXAC [Concomitant]
     Route: 065
     Dates: start: 20130604
  129. EVOXAC [Concomitant]
     Route: 065
     Dates: start: 20130702
  130. EVOXAC [Concomitant]
     Route: 065
     Dates: start: 20130730
  131. EVOXAC [Concomitant]
     Route: 065
     Dates: start: 20130827
  132. EVOXAC [Concomitant]
     Route: 065
     Dates: start: 20131008
  133. EVOXAC [Concomitant]
     Route: 065
     Dates: start: 20131106
  134. EVOXAC [Concomitant]
     Route: 065
     Dates: start: 20131125
  135. SYNTHROID [Concomitant]
     Route: 065
     Dates: start: 20130702
  136. SYNTHROID [Concomitant]
     Route: 065
     Dates: start: 20130730
  137. SYNTHROID [Concomitant]
     Route: 065
     Dates: start: 20130827
  138. SYNTHROID [Concomitant]
     Route: 065
     Dates: start: 20131008
  139. SYNTHROID [Concomitant]
     Route: 065
     Dates: start: 20131106
  140. SYNTHROID [Concomitant]
     Route: 065
     Dates: start: 20131125
  141. SYNTHROID [Concomitant]
     Route: 065
     Dates: start: 20130604
  142. LASIX [Concomitant]
     Route: 065
     Dates: start: 20130702
  143. LASIX [Concomitant]
     Route: 065
     Dates: start: 20130730
  144. LASIX [Concomitant]
     Route: 065
     Dates: start: 20130827
  145. LASIX [Concomitant]
     Route: 065
     Dates: start: 20131008
  146. LASIX [Concomitant]
     Route: 065
     Dates: start: 20131106
  147. LASIX [Concomitant]
     Route: 065
     Dates: start: 20131125
  148. LEVSIN [Concomitant]
     Indication: LARYNGOSPASM
     Route: 065

REACTIONS (4)
  - Laryngeal oedema [Recovered/Resolved]
  - Infusion related reaction [Recovered/Resolved]
  - Flushing [Recovered/Resolved]
  - Laryngospasm [Recovered/Resolved]
